FAERS Safety Report 5989403-1 (Version None)
Quarter: 2008Q4

REPORT INFORMATION
  Report Type: 
  Country: None (occurrence: None)
  Receive Date: 20081210
  Receipt Date: 20081209
  Transmission Date: 20090506
  Serious: Yes (Hospitalization)
  Sender: FDA-Public Use
  Company Number: GB-WYE-G02744008

PATIENT
  Age: 66 Year
  Sex: Female
  Weight: 75 kg

DRUGS (1)
  1. TAZOCIN [Suspect]
     Indication: URINARY TRACT INFECTION PSEUDOMONAL
     Dosage: UNKNOWN
     Route: 042
     Dates: start: 20081119, end: 20081124

REACTIONS (1)
  - INTERNATIONAL NORMALISED RATIO INCREASED [None]
